FAERS Safety Report 4535886-3 (Version None)
Quarter: 2004Q4

REPORT INFORMATION
  Report Type: 
  Country: None (occurrence: None)
  Receive Date: 20041223
  Receipt Date: 20041118
  Transmission Date: 20050328
  Serious: Yes (Other)
  Sender: FDA-Public Use
  Company Number: PHBS2004JP15599

PATIENT
  Age: 33 Year
  Sex: Male
  Weight: 54 kg

DRUGS (7)
  1. PHENOBAL [Concomitant]
     Route: 048
  2. BREDININ [Concomitant]
     Dosage: 150 MG/D
     Route: 048
     Dates: start: 20041102
  3. PREDONINE [Concomitant]
     Dosage: 40-30 MG/D
     Route: 048
     Dates: start: 20040914
  4. PERSANTIN-L [Concomitant]
     Dosage: 300 MG/D
     Route: 048
     Dates: start: 20041009
  5. MYSTAN AZWELL [Concomitant]
     Dosage: 10 MG./D
     Route: 048
     Dates: start: 20041109
  6. NEORAL [Suspect]
     Indication: NEPHROTIC SYNDROME
     Dosage: UNK, UNK
     Route: 048
     Dates: start: 20041020, end: 20041020
  7. ALEVIATIN [Suspect]
     Dosage: 300 MG/D
     Route: 048
     Dates: end: 20041110

REACTIONS (5)
  - DIZZINESS [None]
  - DRUG INTERACTION [None]
  - DRUG LEVEL INCREASED [None]
  - DRUG TOXICITY [None]
  - FALL [None]
